FAERS Safety Report 16956798 (Version 1)
Quarter: 2019Q4

REPORT INFORMATION
  Report Type: Spontaneous
  Country: US (occurrence: US)
  Receive Date: 20191024
  Receipt Date: 20191024
  Transmission Date: 20200122
  Serious: Yes (Other)
  Sender: FDA-Public Use
  Company Number: US-MYLANLABS-2019M1099543

PATIENT
  Sex: Female
  Weight: 83 kg

DRUGS (1)
  1. XULANE [Suspect]
     Active Substance: ETHINYL ESTRADIOL\NORELGESTROMIN
     Indication: CONTRACEPTION
     Dosage: AS DIRECTED
     Route: 062
     Dates: start: 2014

REACTIONS (2)
  - Peripheral venous disease [Not Recovered/Not Resolved]
  - Thrombosis [Not Recovered/Not Resolved]
